FAERS Safety Report 9333791 (Version 1)
Quarter: 2013Q2

REPORT INFORMATION
  Report Type: Spontaneous
  Country: US (occurrence: US)
  Receive Date: 20130606
  Receipt Date: 20130606
  Transmission Date: 20140414
  Serious: No
  Sender: FDA-Public Use
  Company Number: US-AMGEN-USASP2013003422

PATIENT
  Age: 76 Year
  Sex: Female

DRUGS (6)
  1. PROLIA [Suspect]
     Indication: OSTEOPOROSIS POSTMENOPAUSAL
     Dosage: 60 MG, Q6MO
     Dates: start: 201207
  2. CALCIUM [Concomitant]
     Dosage: 1200 MG, QD
  3. VITAMIN D                          /00107901/ [Concomitant]
  4. OMEGA 3                            /01334101/ [Concomitant]
  5. ASPIRIN [Concomitant]
  6. SYNTHROID [Concomitant]

REACTIONS (4)
  - Muscular weakness [Unknown]
  - Mobility decreased [Unknown]
  - Local swelling [Recovering/Resolving]
  - Pain in extremity [Unknown]
